FAERS Safety Report 24890517 (Version 1)
Quarter: 2025Q1

REPORT INFORMATION
  Report Type: Spontaneous
  Country: US (occurrence: None)
  Receive Date: 20250126
  Receipt Date: 20250126
  Transmission Date: 20250409
  Serious: Yes (Other)
  Sender: FDA-CTU
  Company Number: None

PATIENT
  Age: 58 Year
  Sex: Female

DRUGS (4)
  1. SEMAGLUTIDE [Suspect]
     Active Substance: SEMAGLUTIDE
     Indication: Weight decreased
     Dosage: OTHER FREQUENCY : 1X WEEKLY, 4 WEEKS?OTHER ROUTE : INJECTION INTO BELLY?
     Route: 050
     Dates: start: 20250113, end: 20250121
  2. ACETAMINOPHEN [Concomitant]
     Active Substance: ACETAMINOPHEN
  3. NAPROXEN SODIUM [Concomitant]
     Active Substance: NAPROXEN SODIUM
  4. VITAMINS [Concomitant]
     Active Substance: VITAMINS

REACTIONS (10)
  - Headache [None]
  - Pyrexia [None]
  - Nausea [None]
  - Hyperhidrosis [None]
  - Confusional state [None]
  - Tremor [None]
  - Constipation [None]
  - Abdominal pain lower [None]
  - Impaired work ability [None]
  - Suspected counterfeit product [None]

NARRATIVE: CASE EVENT DATE: 20250114
